FAERS Safety Report 6194989-0 (Version None)
Quarter: 2009Q2

REPORT INFORMATION
  Report Type: 
  Country: None (occurrence: None)
  Receive Date: 20090519
  Receipt Date: 20090511
  Transmission Date: 20091009
  Serious: Yes (Death)
  Sender: FDA-Public Use
  Company Number: A0779476A

PATIENT
  Age: 75 Year
  Sex: Male

DRUGS (19)
  1. DIGOXIN [Suspect]
     Indication: DRUG USE FOR UNKNOWN INDICATION
     Dosage: .25MG PER DAY
  2. ALBUTEROL [Concomitant]
  3. AZITHROMYCIN [Concomitant]
  4. CYANOCOBALAMIN [Concomitant]
  5. EPOETIN [Concomitant]
  6. SIMVASTATIN [Concomitant]
     Dosage: 40MG PER DAY
  7. WARFARIN SODIUM [Concomitant]
     Dosage: 2MG PER DAY
  8. DIGOXIN [Concomitant]
  9. FUROSEMIDE [Concomitant]
     Dosage: 40MG PER DAY
  10. POTASSIUM CHLORIDE [Concomitant]
     Dosage: 10MG PER DAY
  11. CUBICIN [Concomitant]
  12. DAPTOMYCIN [Concomitant]
  13. UNKNOWN [Concomitant]
  14. PROCRIT [Concomitant]
  15. VITAMIN B-12 [Concomitant]
  16. PROTONIX [Concomitant]
  17. DIPRIVAN [Concomitant]
  18. PIPERACILLIN [Concomitant]
  19. NOREPINEPHRINE BITARTRATE [Concomitant]

REACTIONS (1)
  - SEPSIS [None]
